FAERS Safety Report 4607275-4 (Version None)
Quarter: 2005Q1

REPORT INFORMATION
  Report Type: 
  Country: None (occurrence: None)
  Receive Date: 20050314
  Receipt Date: 20050304
  Transmission Date: 20050727
  Serious: Yes (Other)
  Sender: FDA-Public Use
  Company Number: DE-MERCK-0503DEU00076

PATIENT
  Age: 50 Year
  Sex: Male

DRUGS (3)
  1. VIOXX [Suspect]
     Route: 048
  2. [THERAPY UNSPECIFIED] [Suspect]
     Route: 048
     Dates: start: 20040401
  3. PROPECIA [Concomitant]
     Indication: MALE PATTERN BALDNESS
     Route: 048
     Dates: start: 20031001

REACTIONS (1)
  - ALOPECIA TOTALIS [None]
